FAERS Safety Report 15044249 (Version 2)
Quarter: 2018Q2

REPORT INFORMATION
  Report Type: Report from Study
  Country: GB (occurrence: GB)
  Receive Date: 20180621
  Receipt Date: 20180627
  Transmission Date: 20180711
  Serious: Yes (Death, Hospitalization, Other)
  Sender: FDA-Public Use
  Company Number: GB-PFIZER INC-2018252201

PATIENT
  Age: 38 Year

DRUGS (1)
  1. METHOTREXATE SODIUM. [Suspect]
     Active Substance: METHOTREXATE SODIUM
     Dosage: UNK
     Route: 065

REACTIONS (8)
  - Rheumatoid arthritis [Fatal]
  - Multiple organ dysfunction syndrome [Fatal]
  - Sepsis [Fatal]
  - Stevens-Johnson syndrome [Fatal]
  - Toxic epidermal necrolysis [Fatal]
  - Skin infection [Fatal]
  - Liver disorder [Fatal]
  - Internal haemorrhage [Fatal]
